FAERS Safety Report 14260546 (Version 11)
Quarter: 2018Q3

REPORT INFORMATION
  Report Type: Spontaneous
  Country: IT (occurrence: IT)
  Receive Date: 20171207
  Receipt Date: 20180821
  Transmission Date: 20181010
  Serious: Yes (Hospitalization, Other)
  Sender: FDA-Public Use
  Company Number: PHHY2017IT180078

PATIENT
  Age: 41 Year
  Sex: Female

DRUGS (8)
  1. LEUPRORELIN ACETATE [Suspect]
     Active Substance: LEUPROLIDE ACETATE
     Indication: TRANSGENDER HORMONAL THERAPY
     Dosage: 3.75 MG, QMO
     Route: 065
  2. ESTRADIOL. [Suspect]
     Active Substance: ESTRADIOL
     Indication: TRANSGENDER HORMONAL THERAPY
     Dosage: 1 MG, QD
     Route: 062
  3. LEUPRORELIN ACETATE [Suspect]
     Active Substance: LEUPROLIDE ACETATE
     Indication: FEMINISATION ACQUIRED
  4. CYPROTERONE ACETATE [Suspect]
     Active Substance: CYPROTERONE ACETATE
     Indication: TRANSGENDER HORMONAL THERAPY
     Dosage: 50 MG, QD
     Route: 065
  5. CYPROTERONE ACETATE [Suspect]
     Active Substance: CYPROTERONE ACETATE
     Indication: FEMINISATION ACQUIRED
  6. ESTRADIOL. [Suspect]
     Active Substance: ESTRADIOL
     Indication: FEMINISATION ACQUIRED
     Dosage: 2 MG, QD
     Route: 062
  7. ESTRADIOL. [Suspect]
     Active Substance: ESTRADIOL
     Dosage: 3 MG, QD
     Route: 062
  8. ESTRADIOL. [Suspect]
     Active Substance: ESTRADIOL
     Dosage: 3.75 MG, QMO
     Route: 065

REACTIONS (2)
  - Off label use [Unknown]
  - Meningioma [Recovered/Resolved]
